FAERS Safety Report 6133698-0 (Version None)
Quarter: 2009Q1

REPORT INFORMATION
  Report Type: 
  Country: None (occurrence: None)
  Receive Date: 20090326
  Receipt Date: 20090319
  Transmission Date: 20090719
  Serious: Yes (Hospitalization)
  Sender: FDA-Public Use
  Company Number: B0565697A

PATIENT
  Age: 74 Year
  Sex: Male

DRUGS (1)
  1. AVANDAMET [Suspect]
     Route: 048
     Dates: start: 20020401

REACTIONS (3)
  - CHEST PAIN [None]
  - DYSPNOEA [None]
  - OEDEMA [None]
